FAERS Safety Report 14519579 (Version 2)
Quarter: 2018Q1

REPORT INFORMATION
  Report Type: Report from Study
  Country: US (occurrence: US)
  Receive Date: 20180212
  Receipt Date: 20180327
  Transmission Date: 20180509
  Serious: Yes (Hospitalization, Other)
  Sender: FDA-Public Use
  Company Number: US-BAYER-2017-249937

PATIENT
  Age: 65 Year
  Sex: Male

DRUGS (2)
  1. NEXAVAR [Suspect]
     Active Substance: SORAFENIB
     Indication: HEPATOCELLULAR CARCINOMA
     Dosage: 400 MG, BID
     Route: 048
  2. NEXAVAR [Suspect]
     Active Substance: SORAFENIB
     Indication: HEPATOCELLULAR CARCINOMA
     Dosage: 200 MG, BID
     Route: 048
     Dates: start: 20171220

REACTIONS (15)
  - Thermal burn [None]
  - Rash maculo-papular [Recovered/Resolved]
  - Asthenia [None]
  - Fatigue [None]
  - Rash [None]
  - Ill-defined disorder [None]
  - Rash generalised [Recovered/Resolved]
  - Exfoliative rash [Recovered/Resolved]
  - Swelling face [None]
  - Eye swelling [None]
  - Abdominal discomfort [None]
  - Skin exfoliation [None]
  - Adverse drug reaction [None]
  - Adverse reaction [None]
  - Urticaria [None]

NARRATIVE: CASE EVENT DATE: 2017
